FAERS Safety Report 8792796 (Version 3)
Quarter: 2016Q1

REPORT INFORMATION
  Report Type: Spontaneous
  Country: JP (occurrence: JP)
  Receive Date: 20120918
  Receipt Date: 20160113
  Transmission Date: 20160526
  Serious: Yes (Death, Congenital Anomaly, Other)
  Sender: FDA-Public Use
  Company Number: JP-GLAXOSMITHKLINE-B0830572A

PATIENT
  Age: 1 Day
  Sex: Male
  Weight: 1.3 kg

DRUGS (3)
  1. FLUTICASONE PROPIONATE (DISKUS) [Suspect]
     Active Substance: FLUTICASONE PROPIONATE
     Indication: ASTHMA
     Dosage: UNK
     Route: 064
  2. SULBACILLIN [Suspect]
     Active Substance: AMPICILLIN SODIUM\SULBACTAM SODIUM
     Indication: THREATENED LABOUR
     Dosage: 6 G, 1D
     Route: 064
  3. RITODRINE [Suspect]
     Active Substance: RITODRINE
     Indication: THREATENED LABOUR
     Route: 064

REACTIONS (6)
  - Otocephaly [Fatal]
  - Low set ears [Fatal]
  - Congenital jaw malformation [Fatal]
  - Foetal exposure during pregnancy [Unknown]
  - Anomaly of orbit, congenital [Fatal]
  - Dentofacial anomaly [Unknown]

NARRATIVE: CASE EVENT DATE: 20110817
